FAERS Safety Report 15105288 (Version 1)
Quarter: 2018Q4

REPORT INFORMATION
  Report Type: Other
  Country: DE (occurrence: DE)
  Receive Date: 20180704
  Receipt Date: 20180704
  Transmission Date: 20190204
  Serious: No
  Sender: FDA-Public Use
  Company Number: DE-LUPIN PHARMACEUTICALS INC.-2018-02524

PATIENT
  Age: 68 Year
  Sex: Female
  Weight: 94 kg

DRUGS (4)
  1. ATOZET [Suspect]
     Active Substance: ATORVASTATIN CALCIUM\EZETIMIBE
     Indication: HYPERCHOLESTEROLAEMIA
     Dosage: 1 DF DOSAGE FORM EVERY DAYS
     Route: 048
     Dates: start: 20170109, end: 20171105
  2. PRAVASTATIN-RATIOPHARM [Suspect]
     Active Substance: PRAVASTATIN SODIUM
     Indication: HYPERCHOLESTEROLAEMIA
     Dosage: 10 MG MILLGRAM(S) EVERY DAYS, QD
     Route: 048
     Dates: start: 20171212, end: 20180108
  3. SIMVASTATIN. [Suspect]
     Active Substance: SIMVASTATIN
     Indication: HYPERCHOLESTEROLAEMIA
     Dosage: UNK
     Route: 048
  4. FENOFIBRAT HEUMANN [Suspect]
     Active Substance: FENOFIBRATE
     Indication: HYPERCHOLESTEROLAEMIA
     Dosage: 250 MG MILLGRAM(S) EVERY DAYS, QD
     Route: 048
     Dates: start: 20160818, end: 20160906

REACTIONS (2)
  - Myalgia [Recovered/Resolved]
  - Blood creatine phosphokinase increased [Recovered/Resolved]
